FAERS Safety Report 7149606-X (Version None)
Quarter: 2010Q4

REPORT INFORMATION
  Report Type: 
  Country: None (occurrence: None)
  Receive Date: 20101209
  Receipt Date: 20101203
  Transmission Date: 20110411
  Serious: Yes (Hospitalization, Other)
  Sender: FDA-Public Use
  Company Number: US-B.I. PHARMACEUTICALS,INC./RIDGEFIELD-2010-BP-07652BP

PATIENT
  Age: 63 Year
  Sex: Female

DRUGS (10)
  1. CATAPRES [Suspect]
     Indication: HYPERTENSION
     Dosage: 0.8 MG
     Route: 048
     Dates: start: 19800101, end: 19990101
  2. CLONIDINE HCL [Suspect]
     Indication: HYPERTENSION
     Route: 048
     Dates: start: 19990101
  3. PLAVIX [Concomitant]
     Dosage: 75 MG
  4. CARDIZEM CD [Concomitant]
     Dosage: 300 MG
  5. HYDROCHLOROTHIAZIDE [Concomitant]
     Dosage: 25 MG
  6. IMDUR [Concomitant]
     Dosage: 60 MG
  7. LOPRESSOR [Concomitant]
     Dosage: 50 MG
  8. CRESTOR [Concomitant]
     Dosage: 20 MG
  9. METFORMIN HCL [Concomitant]
     Dosage: 500 MG
  10. GLIMEPIRIDE [Concomitant]
     Dosage: 4 MG

REACTIONS (6)
  - BLOOD GLUCOSE INCREASED [None]
  - CEREBROVASCULAR ACCIDENT [None]
  - GALLBLADDER DISORDER [None]
  - HAEMORRHAGE [None]
  - HYPERTENSION [None]
  - TRANSIENT ISCHAEMIC ATTACK [None]
